FAERS Safety Report 21916289 (Version 2)
Quarter: 2023Q1

REPORT INFORMATION
  Report Type: Spontaneous
  Country: IT (occurrence: IT)
  Receive Date: 20230126
  Receipt Date: 20230210
  Transmission Date: 20230417
  Serious: Yes (Hospitalization)
  Sender: FDA-Public Use
  Company Number: IT-TEVA-2023-IT-2848763

PATIENT
  Age: 88 Year
  Sex: Female

DRUGS (6)
  1. BISOPROLOL [Suspect]
     Active Substance: BISOPROLOL
     Indication: Atrial fibrillation
     Dosage: 1.25 MILLIGRAM DAILY; ONCE DAILY
     Route: 065
  2. HYDROCHLOROTHIAZIDE [Suspect]
     Active Substance: HYDROCHLOROTHIAZIDE
     Indication: Hypertension
     Dosage: 12.5 MILLIGRAM DAILY; ONCE DAILY
     Route: 065
  3. RIVAROXABAN [Concomitant]
     Active Substance: RIVAROXABAN
     Indication: Anticoagulant therapy
     Dosage: 15 MILLIGRAM DAILY; ONCE DAILY
     Route: 048
  4. AMOXICILLIN [Concomitant]
     Active Substance: AMOXICILLIN
     Indication: Chronic obstructive pulmonary disease
     Dosage: 2 GRAM DAILY; TWICE DAILY
     Route: 042
  5. METHYLPREDNISOLONE [Concomitant]
     Active Substance: METHYLPREDNISOLONE
     Indication: Chronic obstructive pulmonary disease
     Dosage: 40 MILLIGRAM DAILY; TWICE DAILY
     Route: 042
  6. FUROSEMIDE [Concomitant]
     Active Substance: FUROSEMIDE
     Indication: Cardiac failure
     Dosage: 40 MILLIGRAM DAILY; TWICE DAILY
     Route: 042

REACTIONS (4)
  - Stress cardiomyopathy [Recovered/Resolved]
  - Hyponatraemia [Recovered/Resolved]
  - Bundle branch block left [Recovered/Resolved]
  - Drug ineffective [Unknown]
